FAERS Safety Report 17691236 (Version 1)
Quarter: 2020Q2

REPORT INFORMATION
  Report Type: Spontaneous
  Country: US (occurrence: US)
  Receive Date: 20200422
  Receipt Date: 20200422
  Transmission Date: 20200714
  Serious: No
  Sender: FDA-Public Use
  Company Number: US-ALKEM LABORATORIES LIMITED-US-ALKEM-2020-00403

PATIENT
  Sex: Female
  Weight: 61.69 kg

DRUGS (1)
  1. TRIAMCINOLONE ACETONIDE. [Suspect]
     Active Substance: TRIAMCINOLONE ACETONIDE
     Indication: BLISTER
     Dosage: UNK
     Route: 065
     Dates: end: 201911

REACTIONS (2)
  - Pruritus [Recovering/Resolving]
  - Product use in unapproved indication [Unknown]
